FAERS Safety Report 10195032 (Version 2)
Quarter: 2014Q4

REPORT INFORMATION
  Report Type: Spontaneous
  Country: CN (occurrence: CN)
  Receive Date: 20140526
  Receipt Date: 20141021
  Transmission Date: 20150528
  Serious: Yes (Disabling, Other)
  Sender: FDA-Public Use
  Company Number: PHHY2014CN062687

PATIENT
  Age: 62 Year
  Sex: Male
  Weight: 120 kg

DRUGS (1)
  1. AFINITOR [Suspect]
     Active Substance: EVEROLIMUS
     Indication: PRODUCT USED FOR UNKNOWN INDICATION
     Dosage: 10 MG, UNK
     Route: 048
     Dates: start: 20140407, end: 20140510

REACTIONS (9)
  - Abdominal pain [Unknown]
  - Skin disorder [Recovering/Resolving]
  - Lung disorder [Unknown]
  - Productive cough [Unknown]
  - Cough [Unknown]
  - Interstitial lung disease [Unknown]
  - Liver disorder [Unknown]
  - Mouth ulceration [Unknown]
  - Fatigue [Unknown]

NARRATIVE: CASE EVENT DATE: 20140502
